FAERS Safety Report 23228776 (Version 1)
Quarter: 2023Q4

REPORT INFORMATION
  Report Type: Spontaneous
  Country: US (occurrence: None)
  Receive Date: 20231126
  Receipt Date: 20231126
  Transmission Date: 20240109
  Serious: No
  Sender: FDA-Public Use
  Company Number: US-ROCHE-3262554

PATIENT
  Sex: Male

DRUGS (7)
  1. HERCEPTIN [Suspect]
     Active Substance: TRASTUZUMAB
     Indication: Oesophageal varices haemorrhage
     Route: 065
  2. ACETAMINOPHEN [Concomitant]
     Active Substance: ACETAMINOPHEN
  3. ELIQUIS [Concomitant]
     Active Substance: APIXABAN
  4. FUROSEMIDE [Concomitant]
     Active Substance: FUROSEMIDE
  5. ONDANSETRON [Concomitant]
     Active Substance: ONDANSETRON
  6. POTASSIUM CHLORIDE [Concomitant]
     Active Substance: POTASSIUM CHLORIDE
  7. BACLOFEN [Concomitant]
     Active Substance: BACLOFEN

REACTIONS (3)
  - Burning sensation [Not Recovered/Not Resolved]
  - Temperature intolerance [Not Recovered/Not Resolved]
  - Off label use [Unknown]
